FAERS Safety Report 5139868-2 (Version None)
Quarter: 2006Q4

REPORT INFORMATION
  Report Type: 
  Country: None (occurrence: None)
  Receive Date: 20061026
  Receipt Date: 20061026
  Transmission Date: 20070319
  Serious: Yes (Hospitalization)
  Sender: FDA-Public Use
  Company Number: None

PATIENT
  Sex: Male
  Weight: 149 kg

DRUGS (2)
  1. METOLAZONE [Suspect]
     Indication: CARDIAC FAILURE CONGESTIVE
     Dosage: 2.5MG DAILY PO
     Route: 048
     Dates: start: 20060724, end: 20060810
  2. FUROSEMIDE [Suspect]
     Indication: CARDIAC FAILURE CONGESTIVE
     Dosage: 200MG DAILY PO
     Route: 048
     Dates: start: 20051201

REACTIONS (1)
  - RENAL FAILURE ACUTE [None]
